FAERS Safety Report 12346721 (Version 1)
Quarter: 2016Q2

REPORT INFORMATION
  Report Type: Spontaneous
  Country: ES (occurrence: ES)
  Receive Date: 20160509
  Receipt Date: 20160509
  Transmission Date: 20160815
  Serious: Yes (Other)
  Sender: FDA-Public Use
  Company Number: ES-SUN PHARMACEUTICAL INDUSTRIES LTD-2016RR-115498

PATIENT
  Age: 50 Year
  Sex: Male

DRUGS (3)
  1. TEMOZOLOMIDE. [Suspect]
     Active Substance: TEMOZOLOMIDE
     Indication: ACTH-PRODUCING PITUITARY TUMOUR
     Dosage: 150 MG/M2, DAILY, FOR THE REMAINING 4 CYCLES
     Route: 065
  2. TEMOZOLOMIDE. [Suspect]
     Active Substance: TEMOZOLOMIDE
     Indication: ACTH-PRODUCING PITUITARY TUMOUR
     Dosage: 200 MG/M2/DAY (DAYS 1-5 OF A 28 DAY CYCLE) DURING THE FIRST 3 CYCLES;
     Route: 065
  3. KETOCONAZOLE. [Suspect]
     Active Substance: KETOCONAZOLE
     Indication: CORTISOL FREE URINE
     Route: 065

REACTIONS (5)
  - Neutropenia [Unknown]
  - Leukopenia [Unknown]
  - Disease progression [Unknown]
  - Hepatotoxicity [Unknown]
  - Thrombocytopenia [Unknown]
